FAERS Safety Report 8603011-5 (Version None)
Quarter: 2012Q3

REPORT INFORMATION
  Report Type: 
  Country: None (occurrence: None)
  Receive Date: 20120817
  Receipt Date: 20120522
  Transmission Date: 20120928
  Serious: No
  Sender: FDA-Public Use
  Company Number: US-GLAXOSMITHKLINE-A0979118A

PATIENT
  Age: 52 Year
  Sex: Female
  Weight: 54.5 kg

DRUGS (2)
  1. ALPRAZOLAM [Concomitant]
     Route: 048
     Dates: start: 20101001
  2. VOTRIENT [Suspect]
     Indication: SARCOMA
     Dosage: 800MG PER DAY

REACTIONS (1)
  - BLOOD PRESSURE INCREASED [None]
